FAERS Safety Report 11314896 (Version 1)
Quarter: 2015Q3

REPORT INFORMATION
  Report Type: Other
  Country: GB (occurrence: GB)
  Receive Date: 20150727
  Receipt Date: 20150727
  Transmission Date: 20151125
  Serious: Yes (Other)
  Sender: FDA-Public Use
  Company Number: GB-MYLANLABS-2015M1023819

PATIENT

DRUGS (13)
  1. AMOXICILLIN. [Concomitant]
     Active Substance: AMOXICILLIN
     Dosage: 1 DF, TID
     Dates: start: 20150427, end: 20150504
  2. CLARITHROMYCIN. [Concomitant]
     Active Substance: CLARITHROMYCIN
     Dosage: 1 DF, UNK
     Dates: start: 20150427, end: 20150504
  3. SALBUTAMOL [Concomitant]
     Active Substance: ALBUTEROL
     Indication: DYSPNOEA
     Dosage: ONE TO TWO PUFFS UP TO FOUR TIMES A DAY WHEN REQUIRED
     Route: 055
     Dates: start: 20150501
  4. CETIRIZINE [Concomitant]
     Active Substance: CETIRIZINE HYDROCHLORIDE
     Indication: HYPERSENSITIVITY
     Dosage: 1 DF, QD
     Dates: start: 20150702
  5. DOXYCYCLINE. [Concomitant]
     Active Substance: DOXYCYCLINE
     Dosage: 1 DF (TWO TO BE TAKEN ON THE 1ST DAY THEN ONE)
     Dates: start: 20150414, end: 20150421
  6. NYSTAN [Concomitant]
     Active Substance: NYSTATIN
     Indication: FUNGAL INFECTION
     Dosage: 1 ML, QID (IN THE MOUTH)
     Dates: start: 20150605, end: 20150612
  7. NYSTATIN. [Concomitant]
     Active Substance: NYSTATIN
     Dosage: 1 ML, QID
     Dates: start: 20150615, end: 20150622
  8. BENDROFLUMETHIAZIDE [Concomitant]
     Active Substance: BENDROFLUMETHIAZIDE
     Dosage: 1 DF, QD
     Dates: start: 20140515
  9. LANSOPRAZOLE. [Concomitant]
     Active Substance: LANSOPRAZOLE
     Indication: GASTROOESOPHAGEAL REFLUX PROPHYLAXIS
     Dosage: 1 DF, QD
     Dates: start: 20150702
  10. MONTELUKAST [Suspect]
     Active Substance: MONTELUKAST SODIUM
     Dosage: UNK
     Dates: start: 20150622
  11. FOSTAIR [Concomitant]
     Active Substance: BECLOMETHASONE\FORMOTEROL
     Indication: PROPHYLAXIS
     Dosage: 2 DF, BID
     Route: 055
     Dates: start: 20150515
  12. PREDNISOLONE. [Concomitant]
     Active Substance: PREDNISOLONE
     Dosage: 6 DF, QD (IN THE MORNING.)
     Dates: start: 20150515, end: 20150529
  13. RAMIPRIL. [Concomitant]
     Active Substance: RAMIPRIL
     Dosage: 1 DF, QD (AT NIGHT.)
     Dates: start: 20140515

REACTIONS (3)
  - Muscle spasms [Recovering/Resolving]
  - Diarrhoea [Recovering/Resolving]
  - Malaise [Recovering/Resolving]

NARRATIVE: CASE EVENT DATE: 20150703
